FAERS Safety Report 16396289 (Version 9)
Quarter: 2023Q4

REPORT INFORMATION
  Report Type: Report from Study
  Country: AT (occurrence: AT)
  Receive Date: 20190605
  Receipt Date: 20231207
  Transmission Date: 20240110
  Serious: Yes (Hospitalization, Other)
  Sender: FDA-Public Use
  Company Number: AT-TAKEDA-2019TUS033110

PATIENT
  Sex: Female

DRUGS (23)
  1. BRENTUXIMAB VEDOTIN [Suspect]
     Active Substance: BRENTUXIMAB VEDOTIN
     Indication: Hodgkin^s disease
     Dosage: 1.65 MILLIGRAM/KILOGRAM
     Route: 065
     Dates: start: 20190426
  2. BRENTUXIMAB VEDOTIN [Suspect]
     Active Substance: BRENTUXIMAB VEDOTIN
     Dosage: 1.65 MILLIGRAM/KILOGRAM
     Route: 065
     Dates: start: 20190517
  3. BRENTUXIMAB VEDOTIN [Suspect]
     Active Substance: BRENTUXIMAB VEDOTIN
     Dosage: 1.64 MILLIGRAM/SQ. METER
     Route: 065
     Dates: start: 20190606
  4. BRENTUXIMAB VEDOTIN [Suspect]
     Active Substance: BRENTUXIMAB VEDOTIN
     Dosage: 1.61 MILLIGRAM/SQ. METER
     Route: 065
     Dates: start: 20190701
  5. DEXAMETHASONE [Suspect]
     Active Substance: DEXAMETHASONE
     Indication: Hodgkin^s disease
     Dosage: 160 MILLIGRAM
     Route: 065
     Dates: start: 20190427
  6. DEXAMETHASONE [Suspect]
     Active Substance: DEXAMETHASONE
     Dosage: 160 MILLIGRAM
     Route: 065
     Dates: start: 20190518
  7. DEXAMETHASONE [Suspect]
     Active Substance: DEXAMETHASONE
     Dosage: 160 MILLIGRAM
     Route: 065
     Dates: start: 20190607
  8. DOXORUBICIN [Suspect]
     Active Substance: DOXORUBICIN
     Indication: Hodgkin^s disease
     Dosage: 38.82 MILLIGRAM/SQ. METER
     Route: 065
     Dates: start: 20190427
  9. DOXORUBICIN [Suspect]
     Active Substance: DOXORUBICIN
     Dosage: 87 MILLIGRAM/SQ. METER
     Route: 065
     Dates: start: 20190518
  10. DOXORUBICIN [Suspect]
     Active Substance: DOXORUBICIN
     Dosage: 38.67 MILLIGRAM/SQ. METER
     Route: 065
     Dates: start: 20190607
  11. DOXORUBICIN [Suspect]
     Active Substance: DOXORUBICIN
     Dosage: 39.82 MILLIGRAM/SQ. METER
     Route: 065
     Dates: start: 20190702
  12. CYCLOPHOSPHAMIDE [Suspect]
     Active Substance: CYCLOPHOSPHAMIDE
     Indication: Hodgkin^s disease
     Dosage: 1235.9 MILLIGRAM/SQ. METER
     Route: 065
     Dates: start: 20190427
  13. CYCLOPHOSPHAMIDE [Suspect]
     Active Substance: CYCLOPHOSPHAMIDE
     Dosage: 1235.9 MILLIGRAM/SQ. METER
     Route: 065
     Dates: start: 20190518
  14. CYCLOPHOSPHAMIDE [Suspect]
     Active Substance: CYCLOPHOSPHAMIDE
     Dosage: 1231.1 MILLIGRAM/SQ. METER
     Route: 065
     Dates: start: 20190607
  15. CYCLOPHOSPHAMIDE [Suspect]
     Active Substance: CYCLOPHOSPHAMIDE
     Dosage: 1267 MILLIGRAM/SQ. METER
     Route: 065
     Dates: start: 20190702
  16. DACARBAZINE [Suspect]
     Active Substance: DACARBAZINE
     Indication: Hodgkin^s disease
     Dosage: 251.76 MILLIGRAM/SQ. METER
     Route: 065
     Dates: start: 20190428
  17. DACARBAZINE [Suspect]
     Active Substance: DACARBAZINE
     Dosage: 251.76 MILLIGRAM/SQ. METER
     Route: 065
     Dates: start: 20190520
  18. DACARBAZINE [Suspect]
     Active Substance: DACARBAZINE
     Dosage: 250.78 MILLIGRAM/SQ. METER
     Route: 065
     Dates: start: 20190608
  19. DACARBAZINE [Suspect]
     Active Substance: DACARBAZINE
     Dosage: 249 MILLIGRAM/SQ. METER
     Route: 065
     Dates: start: 20190703
  20. ETOPOSIDE [Suspect]
     Active Substance: ETOPOSIDE
     Indication: Hodgkin^s disease
     Dosage: 151.05 MILLIGRAM
     Route: 065
     Dates: start: 20190427
  21. ETOPOSIDE [Suspect]
     Active Substance: ETOPOSIDE
     Dosage: 990 MILLIGRAM
     Route: 065
     Dates: start: 20190518
  22. ETOPOSIDE [Suspect]
     Active Substance: ETOPOSIDE
     Dosage: 150.47 MILLIGRAM
     Route: 065
     Dates: start: 20190607
  23. ETOPOSIDE [Suspect]
     Active Substance: ETOPOSIDE
     Dosage: 149 MILLIGRAM
     Route: 065
     Dates: start: 20190702

REACTIONS (4)
  - Neutropenic sepsis [Recovered/Resolved]
  - Leukopenia [Not Recovered/Not Resolved]
  - Dizziness [Recovered/Resolved]
  - Neutropenia [Recovered/Resolved]

NARRATIVE: CASE EVENT DATE: 20190504
